FAERS Safety Report 7339462-9 (Version None)
Quarter: 2011Q1

REPORT INFORMATION
  Report Type: 
  Country: None (occurrence: None)
  Receive Date: 20110308
  Receipt Date: 20110103
  Transmission Date: 20110831
  Serious: No
  Sender: FDA-Public Use
  Company Number: US-AMGEN-USASP2011000262

PATIENT
  Sex: Female

DRUGS (3)
  1. CALCIUM [Concomitant]
  2. EVISTA [Concomitant]
  3. PROLIA [Suspect]
     Indication: OSTEOPENIA
     Dates: start: 20101209

REACTIONS (3)
  - PAIN [None]
  - FALL [None]
  - MUSCULOSKELETAL PAIN [None]
